FAERS Safety Report 19916409 (Version 1)
Quarter: 2021Q4

REPORT INFORMATION
  Report Type: Spontaneous
  Country: US (occurrence: US)
  Receive Date: 20211005
  Receipt Date: 20211005
  Transmission Date: 20220303
  Serious: No
  Sender: FDA-Public Use
  Company Number: US-BION-009765

PATIENT

DRUGS (2)
  1. PROGESTERONE [Suspect]
     Active Substance: PROGESTERONE
     Indication: Hormone replacement therapy
     Dosage: STRENGTH-200 MG (RED-DYE FREE)-IMPRINT P4
  2. ESTROGEN NOS [Suspect]
     Active Substance: ESTROGENS
     Indication: Hormone replacement therapy

REACTIONS (1)
  - Urticaria [Unknown]
